FAERS Safety Report 10569036 (Version 2)
Quarter: 2014Q4

REPORT INFORMATION
  Report Type: Report from Study
  Country: CA (occurrence: CA)
  Receive Date: 20141106
  Receipt Date: 20141106
  Transmission Date: 20150529
  Serious: Yes (Hospitalization, Other)
  Sender: FDA-Public Use
  Company Number: CA-ABBVIE-14K-028-1290443-00

PATIENT
  Age: 40 Year
  Sex: Female
  Weight: 56.3 kg

DRUGS (5)
  1. HUMIRA [Suspect]
     Active Substance: ADALIMUMAB
     Indication: CROHN^S DISEASE
     Route: 058
     Dates: start: 20140915
  2. INH [Interacting]
     Active Substance: ISONIAZID
     Indication: TUBERCULIN TEST POSITIVE
     Route: 048
     Dates: start: 20140910, end: 20141009
  3. CODEINE [Concomitant]
     Active Substance: CODEINE
     Indication: PRODUCT USED FOR UNKNOWN INDICATION
  4. INH [Interacting]
     Active Substance: ISONIAZID
     Indication: TUBERCULOSIS
  5. EFFEXOR [Concomitant]
     Active Substance: VENLAFAXINE HYDROCHLORIDE
     Indication: PRODUCT USED FOR UNKNOWN INDICATION

REACTIONS (11)
  - Nausea [Unknown]
  - Dizziness [Unknown]
  - Cold sweat [Unknown]
  - Tuberculosis [Recovered/Resolved]
  - Palpitations [Unknown]
  - Tachycardia [Unknown]
  - Vomiting [Recovered/Resolved]
  - Hot flush [Unknown]
  - Drug interaction [Unknown]
  - Drug intolerance [Recovered/Resolved]
  - Hypoaesthesia [Unknown]

NARRATIVE: CASE EVENT DATE: 201409
